FAERS Safety Report 5430964-9 (Version None)
Quarter: 2007Q3

REPORT INFORMATION
  Report Type: 
  Country: None (occurrence: None)
  Receive Date: 20070830
  Receipt Date: 20070823
  Transmission Date: 20080115
  Serious: Yes (Life-Threatening, Other)
  Sender: FDA-Public Use
  Company Number: A0669208A

PATIENT
  Age: 48 Year
  Sex: Female
  Weight: 98.2 kg

DRUGS (5)
  1. COREG CR [Suspect]
     Dosage: 40MG PER DAY
     Route: 048
     Dates: start: 20070425, end: 20070802
  2. LISINOPRIL [Concomitant]
     Dosage: 20MG PER DAY
  3. LASIX [Concomitant]
     Dosage: 40MG PER DAY
  4. KLOR-CON [Concomitant]
     Dosage: 10MEQ PER DAY
  5. COREG [Concomitant]
     Route: 048
     Dates: start: 20070301

REACTIONS (5)
  - DIZZINESS [None]
  - FLUSHING [None]
  - HYPERHIDROSIS [None]
  - HYPOTENSION [None]
  - NAUSEA [None]
